FAERS Safety Report 19892235 (Version 2)
Quarter: 2021Q4

REPORT INFORMATION
  Report Type: Spontaneous
  Country: US (occurrence: US)
  Receive Date: 20210929
  Receipt Date: 20211028
  Transmission Date: 20220303
  Serious: No
  Sender: FDA-Public Use
  Company Number: US-JNJFOC-20210938175

PATIENT
  Sex: Female

DRUGS (1)
  1. SIMPONI [Suspect]
     Active Substance: GOLIMUMAB
     Indication: Rheumatoid arthritis
     Dosage: LAST ADMINISTRATION WAS ON 20-AUG-2021.
     Route: 058

REACTIONS (3)
  - Drug ineffective [Unknown]
  - C-reactive protein increased [Unknown]
  - Product dose omission issue [Unknown]
